FAERS Safety Report 7467710-3 (Version None)
Quarter: 2011Q2

REPORT INFORMATION
  Report Type: 
  Country: None (occurrence: None)
  Receive Date: 20110505
  Receipt Date: 20110505
  Transmission Date: 20111010
  Serious: Yes (Hospitalization)
  Sender: FDA-Public Use
  Company Number: None

PATIENT
  Sex: Male
  Weight: 97 kg

DRUGS (8)
  1. CALCIUM CARBONATE [Suspect]
     Dosage: 19000 MG
  2. VITAMIN D2 [Suspect]
     Dosage: 15200 IU
  3. VICODIN [Concomitant]
  4. MULTI-VITAMIN [Concomitant]
  5. ZOMETA [Suspect]
     Dosage: 20 MG
  6. LUPRON [Concomitant]
  7. MS CONTIN [Concomitant]
  8. TRILIPIX [Concomitant]

REACTIONS (5)
  - ABDOMINAL DISTENSION [None]
  - ABDOMINAL PAIN [None]
  - VOMITING [None]
  - NAUSEA [None]
  - ATRIAL FIBRILLATION [None]
